FAERS Safety Report 7154322-4 (Version None)
Quarter: 2010Q4

REPORT INFORMATION
  Report Type: 
  Country: None (occurrence: None)
  Receive Date: 20101213
  Receipt Date: 20101201
  Transmission Date: 20110411
  Serious: Yes (Death, Hospitalization, Other)
  Sender: FDA-Public Use
  Company Number: US-ACTELION-A-NJ2010-40370

PATIENT

DRUGS (5)
  1. BOSENTAN TABLET UNKNOWN US MG [Suspect]
     Indication: PULMONARY ARTERIAL HYPERTENSION
     Dosage: UNK
     Route: 048
     Dates: start: 20090422, end: 20100901
  2. VENTAVIS [Suspect]
     Indication: PULMONARY ARTERIAL HYPERTENSION
     Dosage: UNK
     Route: 055
     Dates: start: 20100429, end: 20101020
  3. TADALAFIL [Concomitant]
  4. COUMADIN [Concomitant]
  5. REVATIO [Concomitant]

REACTIONS (6)
  - DEATH [None]
  - DYSPNOEA [None]
  - FLUID OVERLOAD [None]
  - HYPOXIA [None]
  - LUNG DISORDER [None]
  - OEDEMA PERIPHERAL [None]
